FAERS Safety Report 6072650-0 (Version None)
Quarter: 2009Q1

REPORT INFORMATION
  Report Type: 
  Country: None (occurrence: None)
  Receive Date: 20090210
  Receipt Date: 20090129
  Transmission Date: 20090719
  Serious: Yes (Death)
  Sender: FDA-Public Use
  Company Number: ES-PFIZER INC-2009163189

PATIENT

DRUGS (3)
  1. SUNITINIB MALATE [Suspect]
     Indication: RENAL CANCER
     Dosage: 37.5 MG, 1X/DAY
  2. GEMCITABINE [Suspect]
     Indication: RENAL CANCER
     Dosage: 1829 MG, 1X/DAY
  3. CAPECITABINE [Suspect]
     Indication: RENAL CANCER
     Dosage: 850 MG, 1X/DAY

REACTIONS (1)
  - DEATH [None]
